FAERS Safety Report 4355322-X (Version None)
Quarter: 2004Q2

REPORT INFORMATION
  Report Type: 
  Country: None (occurrence: None)
  Receive Date: 20040504
  Receipt Date: 20040420
  Transmission Date: 20050107
  Serious: Yes (Hospitalization)
  Sender: FDA-Public Use
  Company Number: B0330915A

PATIENT
  Age: 38 Year
  Sex: Male

DRUGS (18)
  1. ALKERAN [Suspect]
     Dosage: 140 MG/M2/INTRAVENOUS
     Route: 042
  2. CARMUSTINE [Suspect]
     Dosage: 300 MG/M2
  3. ETOPOSIDE [Suspect]
     Dosage: 800 MG/M2
  4. CYTARABINE [Suspect]
     Dosage: 1600 MG/M2
  5. ANTITHYMOCYTE IG [Concomitant]
  6. TACROLIMUS [Concomitant]
  7. TACROLIMUS [Concomitant]
  8. METHOTREXATE [Concomitant]
  9. IMMUNE GLOBULIN INTRAVENOUS (HUMAN) [Concomitant]
  10. ACYCLOVIR [Concomitant]
  11. VALACICLOVIR HDYROCHLORID [Concomitant]
  12. ITRACONAZOLE [Concomitant]
  13. NORFLOXACIN [Concomitant]
  14. ANTIFUNGAL [Concomitant]
  15. TPN [Concomitant]
  16. MULTI-VITAMIN [Concomitant]
  17. FOLIC ACID [Concomitant]
  18. ANTIBIOTICS [Concomitant]

REACTIONS (3)
  - BONE MARROW TRANSPLANT [None]
  - GRAFT VERSUS HOST DISEASE [None]
  - PNEUMONIA ASPERGILLUS [None]
